FAERS Safety Report 25245332 (Version 3)
Quarter: 2025Q2

REPORT INFORMATION
  Report Type: Spontaneous
  Country: JP (occurrence: JP)
  Receive Date: 20250428
  Receipt Date: 20250611
  Transmission Date: 20250717
  Serious: No
  Sender: PFIZER
  Company Number: JP-PFIZER INC-202500087996

PATIENT
  Sex: Male
  Weight: 6.31 kg

DRUGS (8)
  1. PRECEDEX [Suspect]
     Active Substance: DEXMEDETOMIDINE HYDROCHLORIDE
     Indication: Infant sedation
     Dates: end: 20250328
  2. MILRINONE [Concomitant]
     Active Substance: MILRINONE
     Indication: Cardiac disorder
  3. HEPARIN SODIUM AND DEXTROSE [Concomitant]
     Active Substance: HEPARIN SODIUM
     Indication: Prophylaxis
  4. FUROSEMIDE [Concomitant]
     Active Substance: FUROSEMIDE
     Indication: Diuretic therapy
  5. ALDACTONE [Concomitant]
     Active Substance: SPIRONOLACTONE
     Indication: Diuretic therapy
  6. TRICHLORMETHIAZIDE [Concomitant]
     Active Substance: TRICHLORMETHIAZIDE
     Indication: Diuretic therapy
  7. BISOPROLOL [Concomitant]
     Active Substance: BISOPROLOL
     Indication: Heart rate abnormal
  8. PIMOBENDAN [Concomitant]
     Active Substance: PIMOBENDAN
     Indication: Cardiac disorder

REACTIONS (2)
  - Poor quality device used [Unknown]
  - Syringe issue [Unknown]

NARRATIVE: CASE EVENT DATE: 20250328
